FAERS Safety Report 18457979 (Version 1)
Quarter: 2020Q4

REPORT INFORMATION
  Report Type: Spontaneous
  Country: CA (occurrence: CA)
  Receive Date: 20201103
  Receipt Date: 20201103
  Transmission Date: 20210114
  Serious: Yes (Other)
  Sender: FDA-Public Use
  Company Number: CA-PFIZER INC-2020425345

PATIENT
  Age: 69 Year
  Sex: Female

DRUGS (6)
  1. HYDROCHLOROTHIAZIDE. [Concomitant]
     Active Substance: HYDROCHLOROTHIAZIDE
     Indication: BLOOD PRESSURE ABNORMAL
     Dosage: UNK
  2. TELMISARTAN. [Concomitant]
     Active Substance: TELMISARTAN
     Indication: BLOOD PRESSURE ABNORMAL
     Dosage: UNK
  3. PREDNISONE. [Concomitant]
     Active Substance: PREDNISONE
     Dosage: UNK
  4. SULFASALAZINE. [Suspect]
     Active Substance: SULFASALAZINE
     Dosage: 1000 MG (500 MG,2 IN 1 D)
     Route: 048
     Dates: end: 20201021
  5. METHOTREXATE SODIUM. [Suspect]
     Active Substance: METHOTREXATE SODIUM
     Dosage: UNK
     Dates: start: 20200915
  6. SULFASALAZINE. [Suspect]
     Active Substance: SULFASALAZINE
     Indication: RHEUMATOID ARTHRITIS
     Dosage: 2000 MG (1000 MG,2 IN 1 D)
     Route: 048
     Dates: start: 202009

REACTIONS (11)
  - Chills [Recovered/Resolved]
  - Sleep disorder [Recovered/Resolved]
  - Rheumatoid arthritis [Recovered/Resolved]
  - Dysstasia [Recovered/Resolved]
  - Abdominal discomfort [Recovered/Resolved]
  - Muscular weakness [Recovered/Resolved]
  - Fluid retention [Recovered/Resolved]
  - Headache [Recovered/Resolved]
  - Therapeutic product effect incomplete [Unknown]
  - Psoriasis [Recovered/Resolved]
  - Diarrhoea [Recovered/Resolved]
